FAERS Safety Report 23066891 (Version 1)
Quarter: 2023Q4

REPORT INFORMATION
  Report Type: Spontaneous
  Country: CN (occurrence: CN)
  Receive Date: 20231016
  Receipt Date: 20231016
  Transmission Date: 20240110
  Serious: Yes (Hospitalization)
  Sender: FDA-Public Use
  Company Number: CN-CHEPLA-2023012757

PATIENT
  Age: 67 Year
  Sex: Male
  Weight: 70 kg

DRUGS (1)
  1. CAPECITABINE [Suspect]
     Active Substance: CAPECITABINE
     Indication: Neoplasm malignant
     Dosage: APPROVAL NO. GYZZ H20073024, BID, FOR ABOUT A WEEK?DAILY DOSE: 3 GRAM
     Route: 048
     Dates: start: 20230909, end: 20230923

REACTIONS (5)
  - Mucosal ulceration [Recovering/Resolving]
  - Toothache [Recovering/Resolving]
  - Gingival bleeding [Recovering/Resolving]
  - White blood cell count decreased [Recovering/Resolving]
  - Platelet count decreased [Recovering/Resolving]

NARRATIVE: CASE EVENT DATE: 20230915
